FAERS Safety Report 6239811-9 (Version None)
Quarter: 2009Q2

REPORT INFORMATION
  Report Type: 
  Country: None (occurrence: None)
  Receive Date: 20090623
  Receipt Date: 20090413
  Transmission Date: 20091009
  Serious: Yes (Hospitalization)
  Sender: FDA-Public Use
  Company Number: TR-ELI_LILLY_AND_COMPANY-TR200906003267

PATIENT
  Sex: Female

DRUGS (11)
  1. HUMALOG MIX 50/50 [Suspect]
     Indication: DIABETES MELLITUS
     Dosage: 20 U, EACH MORNING
     Route: 058
     Dates: start: 20060101
  2. HUMALOG MIX 50/50 [Suspect]
     Dosage: 25 IU, LUNCH TIME
     Route: 058
     Dates: start: 20060101
  3. HUMALOG MIX 75/25 [Suspect]
     Indication: DIABETES MELLITUS
     Dosage: 20 IU, EACH EVENING
     Route: 058
     Dates: start: 20060101
  4. TEFOR [Concomitant]
     Indication: GOITRE
     Dosage: UNK, DAILY (1/D)
     Route: 065
  5. URSO FALK [Concomitant]
     Indication: CARDIAC DISORDER
     Dosage: UNK, 2/D
     Route: 065
  6. DILATREND [Concomitant]
     Indication: BLOOD PRESSURE
     Dosage: UNK, DAILY (1/D)
     Route: 065
  7. DIAFORMIN [Concomitant]
     Indication: DIABETES MELLITUS
     Dosage: UNK, DAILY (1/D)
     Route: 065
  8. PIOGLITAZONE [Concomitant]
     Indication: DIABETES MELLITUS
     Dosage: UNK, DAILY (1/D)
     Route: 065
  9. GLUCOBAY [Concomitant]
     Indication: DIABETES MELLITUS
     Dosage: UNK, DAILY (1/D)
     Route: 065
  10. DOXILEK [Concomitant]
     Indication: EYE DISORDER
     Dosage: UNK, DAILY (1/D)
     Route: 065
  11. LESCOL [Concomitant]
     Indication: BLOOD CHOLESTEROL
     Dosage: UNK, DAILY (1/D)
     Route: 065

REACTIONS (4)
  - EYE DISORDER [None]
  - HEMIPLEGIA [None]
  - HYPERGLYCAEMIA [None]
  - OEDEMA [None]
